FAERS Safety Report 5906129-0 (Version None)
Quarter: 2008Q4

REPORT INFORMATION
  Report Type: 
  Country: None (occurrence: None)
  Receive Date: 20081002
  Receipt Date: 20080925
  Transmission Date: 20090506
  Serious: Yes (Hospitalization, Other)
  Sender: FDA-Public Use
  Company Number: PHHY2008FR22639

PATIENT

DRUGS (8)
  1. STALEVO 100 [Suspect]
     Indication: PARKINSON'S DISEASE
     Dosage: 200 L/50 C/12.5 E MG
     Dates: start: 20080511, end: 20080514
  2. PRAXINOR [Concomitant]
     Indication: HYPOTENSION
  3. DOMPERIDONE [Concomitant]
  4. TRANSILANE [Concomitant]
  5. ARESTAL [Concomitant]
  6. ERCEFURYL [Concomitant]
  7. DEBRIDAT ^IBRAHIM^ [Concomitant]
  8. IMODIUM [Concomitant]

REACTIONS (5)
  - ACCIDENT [None]
  - CONFUSIONAL STATE [None]
  - FALL [None]
  - HALLUCINATION [None]
  - SUICIDE ATTEMPT [None]
